FAERS Safety Report 7945306-4 (Version None)
Quarter: 2011Q4

REPORT INFORMATION
  Report Type: 
  Country: None (occurrence: None)
  Receive Date: 20111129
  Receipt Date: 20110117
  Transmission Date: 20120403
  Serious: No
  Sender: FDA-Public Use
  Company Number: US-GLAXOSMITHKLINE-A0906515A

PATIENT
  Age: 22 Year
  Sex: Female

DRUGS (3)
  1. WELLBUTRIN SR [Suspect]
     Indication: DEPRESSION
     Dosage: 150MG TWICE PER DAY
     Route: 048
     Dates: start: 20110103, end: 20110116
  2. UNKNOWN MEDICATION [Concomitant]
  3. AMBIEN [Concomitant]

REACTIONS (5)
  - MYDRIASIS [None]
  - COLD SWEAT [None]
  - DECREASED APPETITE [None]
  - INSOMNIA [None]
  - DRY MOUTH [None]
